FAERS Safety Report 7944111-2 (Version None)
Quarter: 2011Q4

REPORT INFORMATION
  Report Type: 
  Country: None (occurrence: None)
  Receive Date: 20111128
  Receipt Date: 20111118
  Transmission Date: 20120403
  Serious: Yes (Other)
  Sender: FDA-Public Use
  Company Number: US-ASTRAZENECA-2011SE50523

PATIENT
  Age: 60 Year
  Sex: Female
  Weight: 65.8 kg

DRUGS (13)
  1. MS CONTIN [Concomitant]
  2. LEVOTHYROXINE SODIUM [Concomitant]
  3. DIAZEPAM [Concomitant]
  4. SEROQUEL [Suspect]
     Indication: MIGRAINE
     Route: 048
     Dates: start: 19980101, end: 20110301
  5. SEROQUEL [Suspect]
     Indication: HEADACHE
     Route: 048
     Dates: start: 19980101, end: 20110301
  6. LORTAB [Concomitant]
  7. CLONIDINE [Concomitant]
  8. DEXTROAMPHETAMINE [Concomitant]
     Indication: ATTENTION DEFICIT/HYPERACTIVITY DISORDER
  9. SEROQUEL [Suspect]
     Route: 048
  10. SEROQUEL [Suspect]
     Route: 048
  11. HYDROCODONE [Concomitant]
  12. METFORMIN HCL [Concomitant]
  13. MORPHINE [Concomitant]

REACTIONS (23)
  - SLEEP DISORDER [None]
  - CONVULSION [None]
  - INSOMNIA [None]
  - DRUG DOSE OMISSION [None]
  - IRRITABILITY [None]
  - MUSCLE SPASMS [None]
  - PITUITARY TUMOUR [None]
  - HEADACHE [None]
  - NAUSEA [None]
  - FATIGUE [None]
  - HYPERHIDROSIS [None]
  - CONFUSIONAL STATE [None]
  - ARTHRITIS [None]
  - BRAIN NEOPLASM [None]
  - APNOEIC ATTACK [None]
  - APHAGIA [None]
  - OFF LABEL USE [None]
  - DYSLEXIA [None]
  - WEIGHT DECREASED [None]
  - ILLOGICAL THINKING [None]
  - DRUG INEFFECTIVE FOR UNAPPROVED INDICATION [None]
  - DIABETES MELLITUS [None]
  - MALAISE [None]
